FAERS Safety Report 17395023 (Version 2)
Quarter: 2020Q1

REPORT INFORMATION
  Report Type: Report from Study
  Country: KR (occurrence: KR)
  Receive Date: 20200210
  Receipt Date: 20200211
  Transmission Date: 20200409
  Serious: No
  Sender: FDA-Public Use
  Company Number: KR-B.I. PHARMACEUTICALS,INC./RIDGEFIELD-2020-BI-006240

PATIENT
  Age: 50 Year
  Sex: Female

DRUGS (8)
  1. OMACOR [Concomitant]
     Active Substance: OMEGA-3-ACID ETHYL ESTERS
     Indication: HYPERLIPIDAEMIA
     Route: 065
     Dates: start: 20160906
  2. CARNITIL [ACETYLCARNITINE HYDROCHLORIDE] [Concomitant]
     Indication: DIZZINESS
     Route: 065
     Dates: start: 20160609
  3. JARDIANCE DUO [Suspect]
     Active Substance: EMPAGLIFLOZIN\METFORMIN HYDROCHLORIDE
     Indication: TYPE 2 DIABETES MELLITUS
     Dosage: FORM STRENGTH: 5/850 MILLIGRAM
     Route: 048
     Dates: start: 20190326, end: 20190621
  4. ATORVA [Concomitant]
     Indication: HYPERLIPIDAEMIA
     Route: 065
     Dates: start: 20160906
  5. PIDOGUL [Concomitant]
     Indication: HYPERLIPIDAEMIA
     Route: 065
     Dates: start: 20190227
  6. NORVASC [Concomitant]
     Active Substance: AMLODIPINE BESYLATE
     Indication: ANGINA PECTORIS
     Route: 065
     Dates: start: 20190227
  7. AMARYL [Concomitant]
     Active Substance: GLIMEPIRIDE
     Indication: TYPE 2 DIABETES MELLITUS
     Route: 048
     Dates: start: 20161220
  8. MUCOSTA [Concomitant]
     Active Substance: REBAMIPIDE
     Indication: PROPHYLAXIS AGAINST GASTROINTESTINAL ULCER
     Route: 065
     Dates: start: 20160524

REACTIONS (1)
  - Vulvovaginitis [Recovered/Resolved]

NARRATIVE: CASE EVENT DATE: 2019
